FAERS Safety Report 10232587 (Version 1)
Quarter: 2014Q2

REPORT INFORMATION
  Report Type: Spontaneous
  Country: US (occurrence: None)
  Receive Date: 20140611
  Receipt Date: 20140611
  Transmission Date: 20141212
  Serious: No
  Sender: FDA-Public Use
  Company Number: None

PATIENT
  Age: 39 Year
  Sex: Female
  Weight: 54.43 kg

DRUGS (1)
  1. OTEZLA [Suspect]
     Indication: PSORIATIC ARTHROPATHY
     Dosage: 1 PILL BID, TWICE DAILY, TAKEN BY MOUTH
     Route: 048
     Dates: start: 20140529, end: 20140610

REACTIONS (1)
  - Abdominal pain upper [None]
